FAERS Safety Report 26217024 (Version 1)
Quarter: 2025Q4

REPORT INFORMATION
  Report Type: Spontaneous
  Country: US (occurrence: US)
  Receive Date: 20251231
  Receipt Date: 20251231
  Transmission Date: 20260117
  Serious: No
  Sender: SANOFI AVENTIS
  Company Number: US-SA-2025SA382174

PATIENT
  Age: 59 Year
  Sex: Male
  Weight: 80.91 kg

DRUGS (3)
  1. DUPIXENT [Suspect]
     Active Substance: DUPILUMAB
     Indication: Dermatitis atopic
     Dosage: 300 MG, QOW
     Route: 058
     Dates: start: 202502
  2. VTAMA [Concomitant]
     Active Substance: TAPINAROF
  3. VICKS DAYQUIL/NYQUIL [Concomitant]
     Dosage: UNK

REACTIONS (4)
  - Sinusitis [Unknown]
  - Nasal congestion [Unknown]
  - Cough [Unknown]
  - Pruritus [Recovering/Resolving]

NARRATIVE: CASE EVENT DATE: 20251201
